FAERS Safety Report 12502288 (Version 1)
Quarter: 2016Q2

REPORT INFORMATION
  Report Type: Report from Study
  Country: CO (occurrence: CO)
  Receive Date: 20160627
  Receipt Date: 20160627
  Transmission Date: 20160815
  Serious: Yes (Death, Other)
  Sender: FDA-Public Use
  Company Number: CO-ALEXION-A201604712

PATIENT
  Age: 1 Month
  Sex: Male
  Weight: 5 kg

DRUGS (1)
  1. SOLIRIS [Suspect]
     Active Substance: ECULIZUMAB
     Indication: HAEMOLYTIC URAEMIC SYNDROME
     Dosage: 300 MG, Q3W
     Route: 042
     Dates: start: 20160615, end: 20160615

REACTIONS (1)
  - Renal failure [Fatal]

NARRATIVE: CASE EVENT DATE: 20160526
